FAERS Safety Report 10081614 (Version 2)
Quarter: 2014Q2

REPORT INFORMATION
  Report Type: Spontaneous
  Country: DE (occurrence: DE)
  Receive Date: 20140416
  Receipt Date: 20140617
  Transmission Date: 20141212
  Serious: Yes (Hospitalization, Other)
  Sender: FDA-Public Use
  Company Number: DE-B.I. PHARMACEUTICALS,INC./RIDGEFIELD-2014-BI-17064DE

PATIENT
  Sex: Female

DRUGS (6)
  1. PRADAXA [Suspect]
     Indication: PRODUCT USED FOR UNKNOWN INDICATION
     Dosage: 220 MG
     Route: 065
     Dates: start: 20140211
  2. VALSARTAN [Concomitant]
     Dosage: 160 MG
     Route: 065
  3. VALSARTAN-ACTAVIS COM [Concomitant]
     Dosage: 2 ANZ
     Route: 065
  4. METOPROLOL 100 [Concomitant]
     Dosage: 2 ANZ
     Route: 065
  5. SIMVASTATIN 20 [Concomitant]
     Dosage: 1 ANZ
     Route: 065
  6. L-THYROXIN/LEVOTYROXIN 50 [Concomitant]
     Dosage: 1 ANZ
     Route: 065

REACTIONS (4)
  - Retinal vascular thrombosis [Unknown]
  - Visual acuity reduced [Unknown]
  - Drug intolerance [Unknown]
  - Retinal infarction [Unknown]
